FAERS Safety Report 17163257 (Version 1)
Quarter: 2019Q4

REPORT INFORMATION
  Report Type: Spontaneous
  Country: CN (occurrence: CN)
  Receive Date: 20191217
  Receipt Date: 20191217
  Transmission Date: 20200122
  Serious: Yes (Other)
  Sender: FDA-Public Use
  Company Number: CN-ALVOGEN-2019-ALVOGEN-102170

PATIENT
  Age: 81 Year
  Sex: Male

DRUGS (2)
  1. ACETYLCYSTEINE. [Suspect]
     Active Substance: ACETYLCYSTEINE
     Indication: RESPIRATORY SYMPTOM
     Dosage: 0.6 G, TWICE A DAY
  2. CEFMINOX [Suspect]
     Active Substance: CEFMINOX SODIUM
     Indication: RESPIRATORY SYMPTOM
     Dosage: 1 G, TWICE A DAY

REACTIONS (1)
  - Oesophagitis [Recovered/Resolved]
